FAERS Safety Report 8406617-1 (Version None)
Quarter: 2012Q2

REPORT INFORMATION
  Report Type: 
  Country: None (occurrence: None)
  Receive Date: 20120604
  Receipt Date: 20120523
  Transmission Date: 20120825
  Serious: Yes (Hospitalization)
  Sender: FDA-Public Use
  Company Number: JP-ELI_LILLY_AND_COMPANY-JP201106005326

PATIENT
  Sex: Female

DRUGS (1)
  1. FORTEO [Suspect]
     Dosage: UNK
     Route: 058
     Dates: end: 20120510

REACTIONS (4)
  - PRURITUS [None]
  - CARDIOVASCULAR DISORDER [None]
  - COMPRESSION FRACTURE [None]
  - POSTURE ABNORMAL [None]
